FAERS Safety Report 5136838-5 (Version None)
Quarter: 2006Q4

REPORT INFORMATION
  Report Type: 
  Country: None (occurrence: None)
  Receive Date: 20061023
  Receipt Date: 20061017
  Transmission Date: 20070319
  Serious: Yes (Hospitalization)
  Sender: FDA-Public Use
  Company Number: HQWYE192217OCT06

PATIENT
  Sex: Male

DRUGS (1)
  1. INDERAL [Suspect]
     Dosage: 80 MG ORAL
     Route: 048
     Dates: start: 20010101

REACTIONS (1)
  - THROMBOCYTOPENIA [None]
